FAERS Safety Report 6199787-X (Version None)
Quarter: 2009Q2

REPORT INFORMATION
  Report Type: 
  Country: None (occurrence: None)
  Receive Date: 20090522
  Receipt Date: 20090511
  Transmission Date: 20091009
  Serious: Yes (Hospitalization, Other)
  Sender: FDA-Public Use
  Company Number: US-ELI_LILLY_AND_COMPANY-US200905001936

PATIENT
  Age: 34 Year
  Sex: Male

DRUGS (1)
  1. CYMBALTA [Suspect]
     Indication: DISTURBANCE IN ATTENTION
     Dosage: UNK, UNK
     Dates: start: 20080101, end: 20090429

REACTIONS (8)
  - ABDOMINAL PAIN [None]
  - ARTHRALGIA [None]
  - FATIGUE [None]
  - HAEMATOMA [None]
  - HEPATIC FAILURE [None]
  - JAUNDICE [None]
  - PRURITUS [None]
  - RENAL FAILURE [None]
